FAERS Safety Report 4842294-4 (Version None)
Quarter: 2005Q4

REPORT INFORMATION
  Report Type: 
  Country: None (occurrence: None)
  Receive Date: 20051129
  Receipt Date: 20051114
  Transmission Date: 20060501
  Serious: Yes (Hospitalization)
  Sender: FDA-Public Use
  Company Number: 190763

PATIENT
  Age: 61 Year
  Sex: Female
  Weight: 89.8122 kg

DRUGS (2)
  1. AVONEX [Suspect]
     Indication: MULTIPLE SCLEROSIS
     Dosage: 30 UG; QW; IM
     Route: 030
  2. AVONEX [Suspect]
     Indication: MULTIPLE SCLEROSIS
     Dosage: 30 UG; QW; IM
     Route: 030

REACTIONS (7)
  - BACK PAIN [None]
  - DIFFICULTY IN WALKING [None]
  - DYSSTASIA [None]
  - INCONTINENCE [None]
  - INFLUENZA [None]
  - NOSOCOMIAL INFECTION [None]
  - STAPHYLOCOCCAL INFECTION [None]
